FAERS Safety Report 19884715 (Version 1)
Quarter: 2021Q3

REPORT INFORMATION
  Report Type: Other
  Country: KR (occurrence: KR)
  Receive Date: 20210927
  Receipt Date: 20210927
  Transmission Date: 20211014
  Serious: Yes (Other)
  Sender: FDA-Public Use
  Company Number: KR-ROCHE-2885464

PATIENT
  Age: 60 Year
  Sex: Female

DRUGS (7)
  1. TRASTUZUMAB EMTANSINE [Suspect]
     Active Substance: ADO-TRASTUZUMAB EMTANSINE
     Route: 065
     Dates: start: 20200902
  2. PENIRAMIN [Concomitant]
     Route: 042
     Dates: start: 20200703, end: 20200703
  3. DEXAMETHASONE. [Concomitant]
     Active Substance: DEXAMETHASONE
     Route: 042
     Dates: start: 20200703, end: 20200703
  4. TRASTUZUMAB EMTANSINE [Suspect]
     Active Substance: ADO-TRASTUZUMAB EMTANSINE
     Route: 065
     Dates: start: 20200723
  5. TYLENOL ER [Concomitant]
     Active Substance: ACETAMINOPHEN
     Route: 048
     Dates: start: 20200703
  6. TRASTUZUMAB EMTANSINE [Suspect]
     Active Substance: ADO-TRASTUZUMAB EMTANSINE
     Indication: BREAST CANCER
     Route: 065
     Dates: start: 20200703
  7. TRASTUZUMAB EMTANSINE [Suspect]
     Active Substance: ADO-TRASTUZUMAB EMTANSINE
     Route: 065
     Dates: start: 20200813

REACTIONS (1)
  - Cardiotoxicity [Recovered/Resolved]

NARRATIVE: CASE EVENT DATE: 20200903
